FAERS Safety Report 6911227-9 (Version None)
Quarter: 2010Q3

REPORT INFORMATION
  Report Type: 
  Country: None (occurrence: None)
  Receive Date: 20100806
  Receipt Date: 20100726
  Transmission Date: 20110219
  Serious: Yes (Other)
  Sender: FDA-Public Use
  Company Number: PHHY2010US49130

PATIENT
  Sex: Female

DRUGS (3)
  1. ZOMETA [Suspect]
     Dosage: UNK
  2. ASPIRIN [Suspect]
     Dosage: UNK
  3. IBUPROFEN TABLETS [Suspect]
     Dosage: UNK

REACTIONS (4)
  - CAPILLARY FRAGILITY [None]
  - CONTUSION [None]
  - DRUG HYPERSENSITIVITY [None]
  - ENDOVENOUS ABLATION [None]
